FAERS Safety Report 5460906-1 (Version None)
Quarter: 2007Q3

REPORT INFORMATION
  Report Type: 
  Country: None (occurrence: None)
  Receive Date: 20070827
  Receipt Date: 20070312
  Transmission Date: 20080115
  Serious: Yes (Hospitalization, Other)
  Sender: FDA-Public Use
  Company Number: 2007003506

PATIENT
  Age: 63 Year
  Sex: Female
  Weight: 63.5 kg

DRUGS (6)
  1. VFEND [Suspect]
     Indication: ASPERGILLOSIS
     Dosage: 400 MG (200 MG, 2 IN 1 D)
     Dates: start: 20061216, end: 20061217
  2. ANASTROZOLE [Concomitant]
  3. OXYCONTIN [Concomitant]
  4. AMITRIPTYLINE HCL [Concomitant]
  5. BACTRIM [Concomitant]
  6. WELLBUTRIN [Concomitant]

REACTIONS (1)
  - CONVULSION [None]
